FAERS Safety Report 11857257 (Version 2)
Quarter: 2015Q4

REPORT INFORMATION
  Report Type: Spontaneous
  Country: FR (occurrence: FR)
  Receive Date: 20151221
  Receipt Date: 20151228
  Transmission Date: 20160305
  Serious: Yes (Death)
  Sender: FDA-Public Use
  Company Number: FR-BAUSCH-BL-2015-030361

PATIENT
  Age: 16 Day
  Sex: Female

DRUGS (7)
  1. VITAMIN B12 [Concomitant]
     Active Substance: CYANOCOBALAMIN
     Indication: HYPERAMMONAEMIA
     Route: 030
     Dates: start: 20151207
  2. CLOFRAN [Concomitant]
     Indication: SEPTIC SHOCK
     Route: 042
     Dates: start: 20151209
  3. AMMONUL [Suspect]
     Active Substance: SODIUM BENZOATE\SODIUM PHENYLACETATE
     Indication: HYPERAMMONAEMIA
     Route: 042
     Dates: start: 20151207
  4. HYPNOVEL [Concomitant]
     Active Substance: MIDAZOLAM\MIDAZOLAM HYDROCHLORIDE
     Indication: SEDATION
     Dosage: 0.1 MG/KG/HOUR
     Route: 042
     Dates: start: 20151207
  5. LEVOCAMIL [Concomitant]
     Indication: HYPERAMMONAEMIA
     Route: 042
     Dates: start: 20151207
  6. SUFENTA [Concomitant]
     Active Substance: SUFENTANIL CITRATE
     Indication: SEDATION
     Dosage: 0.2 MICROGRAM/KG/HOUR
     Route: 042
     Dates: start: 20151207
  7. AMIKLIN [Concomitant]
     Active Substance: AMIKACIN SULFATE
     Indication: SEPTIC SHOCK
     Route: 042
     Dates: start: 20151209

REACTIONS (1)
  - Septic shock [Fatal]

NARRATIVE: CASE EVENT DATE: 20151208
